FAERS Safety Report 7790238-8 (Version None)
Quarter: 2011Q3

REPORT INFORMATION
  Report Type: 
  Country: None (occurrence: None)
  Receive Date: 20110930
  Receipt Date: 20110919
  Transmission Date: 20111222
  Serious: Yes (Hospitalization, Other)
  Sender: FDA-Public Use
  Company Number: AT-TYCO HEALTHCARE/MALLINCKRODT-T201101892

PATIENT
  Age: 1 Day

DRUGS (1)
  1. METHADOSE [Suspect]

REACTIONS (2)
  - MATERNAL EXPOSURE DURING PREGNANCY [None]
  - DRUG WITHDRAWAL SYNDROME NEONATAL [None]
